FAERS Safety Report 24668477 (Version 2)
Quarter: 2025Q1

REPORT INFORMATION
  Report Type: Spontaneous
  Country: US (occurrence: US)
  Receive Date: 20241127
  Receipt Date: 20250120
  Transmission Date: 20250408
  Serious: No
  Sender: ROCHE
  Company Number: US-ROCHE-10000139201

PATIENT
  Age: 58 Year
  Sex: Male

DRUGS (2)
  1. ERIVEDGE [Suspect]
     Active Substance: VISMODEGIB
     Indication: Basal cell carcinoma
     Route: 048
     Dates: start: 20240720, end: 20241221
  2. METHOCARBAMOL [Concomitant]
     Active Substance: METHOCARBAMOL

REACTIONS (5)
  - Muscle spasms [Unknown]
  - Ageusia [Unknown]
  - Dysgeusia [Unknown]
  - Weight decreased [Unknown]
  - Alopecia [Unknown]

NARRATIVE: CASE EVENT DATE: 20240820
